FAERS Safety Report 7226578-0 (Version None)
Quarter: 2011Q1

REPORT INFORMATION
  Report Type: 
  Country: None (occurrence: None)
  Receive Date: 20110114
  Receipt Date: 20110103
  Transmission Date: 20110831
  Serious: Yes (Other)
  Sender: FDA-Public Use
  Company Number: DE-CELGENEUS-062-20785-11010064

PATIENT
  Age: 68 Year
  Sex: Female

DRUGS (7)
  1. METOHEXAL [Concomitant]
     Route: 065
  2. MORPHINE [Concomitant]
     Route: 065
  3. OMEPRAZOLE [Concomitant]
     Route: 065
  4. FUROSEMIDE [Concomitant]
     Route: 065
  5. THALIDOMIDE [Suspect]
     Indication: PLASMACYTOMA
     Route: 048
  6. MORPHINE [Concomitant]
     Route: 048
  7. METAMIZOLE [Concomitant]
     Route: 065

REACTIONS (2)
  - FALL [None]
  - FEMORAL NECK FRACTURE [None]
